FAERS Safety Report 8607197-8 (Version None)
Quarter: 2012Q3

REPORT INFORMATION
  Report Type: 
  Country: None (occurrence: None)
  Receive Date: 20120821
  Receipt Date: 20120816
  Transmission Date: 20120928
  Serious: No
  Sender: FDA-Public Use
  Company Number: US-BIOGENIDEC-2012BI031733

PATIENT
  Sex: Male

DRUGS (1)
  1. TYSABRI [Suspect]
     Indication: MULTIPLE SCLEROSIS
     Route: 042
     Dates: start: 20120517

REACTIONS (6)
  - DEPRESSED MOOD [None]
  - GAIT DISTURBANCE [None]
  - HYPOAESTHESIA [None]
  - HEADACHE [None]
  - SINUSITIS [None]
  - MALAISE [None]
